FAERS Safety Report 17528565 (Version 2)
Quarter: 2020Q4

REPORT INFORMATION
  Report Type: Spontaneous
  Country: US (occurrence: US)
  Receive Date: 20200311
  Receipt Date: 20201102
  Transmission Date: 20210113
  Serious: Yes (Disabling, Other)
  Sender: FDA-Public Use
  Company Number: US-SA-2020SA058784

PATIENT

DRUGS (1)
  1. GOLD BOND ORIGINAL STRENGTH POWDER [Suspect]
     Active Substance: MENTHOL\ZINC OXIDE

REACTIONS (9)
  - Injury [Unknown]
  - Loss of personal independence in daily activities [Unknown]
  - Exposure to chemical pollution [Unknown]
  - Disability [Unknown]
  - Occupational exposure to product [Unknown]
  - Pain [Unknown]
  - Emotional distress [Unknown]
  - Deformity [Unknown]
  - Lung adenocarcinoma [Unknown]
